FAERS Safety Report 18897353 (Version 1)
Quarter: 2021Q1

REPORT INFORMATION
  Report Type: Spontaneous
  Country: US (occurrence: US)
  Receive Date: 20210212
  Receipt Date: 20210212
  Transmission Date: 20210420
  Serious: Yes (Hospitalization)
  Sender: FDA-Public Use
  Company Number: None

PATIENT
  Age: 73 Year
  Sex: Female
  Weight: 78 kg

DRUGS (1)
  1. CASIRIVIMAB AND IMDEVIMAB [Suspect]
     Active Substance: CASIRIVIMAB\IMDEVIMAB
     Indication: COVID-19
     Dosage: ?          OTHER FREQUENCY:ONCE;?
     Route: 042
     Dates: start: 20210205, end: 20210205

REACTIONS (8)
  - Hypotension [None]
  - Tremor [None]
  - Oxygen saturation decreased [None]
  - Dyspnoea [None]
  - Blood pressure decreased [None]
  - Tachycardia [None]
  - Cyanosis [None]
  - Chills [None]

NARRATIVE: CASE EVENT DATE: 20210205
